FAERS Safety Report 5953490-7 (Version None)
Quarter: 2008Q4

REPORT INFORMATION
  Report Type: 
  Country: None (occurrence: None)
  Receive Date: 20081114
  Receipt Date: 20081106
  Transmission Date: 20090506
  Serious: Yes (Hospitalization)
  Sender: FDA-Public Use
  Company Number: GR-ROCHE-595985

PATIENT
  Age: 70 Year
  Sex: Male

DRUGS (2)
  1. METHOXY POLYETHYLENE GLYCOL-EPOETIN BETA [Suspect]
     Dosage: DOSE: 120 MCG, FORM REPORTED AS PFS
     Route: 042
     Dates: start: 20081008
  2. EPOETIN NOS [Concomitant]

REACTIONS (1)
  - NEPHROLITHIASIS [None]
